FAERS Safety Report 5305252-1 (Version None)
Quarter: 2007Q2

REPORT INFORMATION
  Report Type: 
  Country: None (occurrence: None)
  Receive Date: 20070424
  Receipt Date: 20070409
  Transmission Date: 20071010
  Serious: Yes (Other)
  Sender: FDA-Public Use
  Company Number: PHEH2004US07834

PATIENT
  Age: 64 Year
  Sex: Female
  Weight: 68.027 kg

DRUGS (26)
  1. ESTRADIOL [Suspect]
     Indication: HORMONE REPLACEMENT THERAPY
     Dosage: 0.05MG
     Dates: start: 20030212, end: 20030711
  2. MEDROXYPROGESTERONE ACETATE [Suspect]
     Indication: HORMONE REPLACEMENT THERAPY
     Dosage: 2.5 MG, UNK
     Route: 048
     Dates: start: 19990409, end: 20021219
  3. PREMPRO [Suspect]
     Indication: HORMONE REPLACEMENT THERAPY
  4. PREMARIN [Suspect]
     Indication: HORMONE REPLACEMENT THERAPY
     Dosage: 0.625 MG, QD
     Route: 048
     Dates: start: 20010308, end: 20020411
  5. PREMARIN [Suspect]
     Dosage: 0.3 MG, QD
     Route: 048
     Dates: start: 19940722, end: 20001106
  6. PROVERA [Suspect]
     Indication: HORMONE REPLACEMENT THERAPY
     Dosage: 2.5 MG, UNK
     Route: 048
     Dates: start: 19890101, end: 20030101
  7. ESTRADERM [Suspect]
     Indication: HORMONE REPLACEMENT THERAPY
     Dosage: 0.05 MG
     Route: 062
     Dates: start: 20021219
  8. PROMETRIUM [Suspect]
     Indication: HORMONE REPLACEMENT THERAPY
     Dosage: 200 MG, UNK
     Route: 048
     Dates: start: 20030212, end: 20030719
  9. CYCRIN [Suspect]
     Dosage: 2.5 MG, QD
     Route: 048
     Dates: start: 19940722, end: 19960216
  10. NOVOLIN 50/50 [Concomitant]
     Indication: DIABETES MELLITUS
     Dosage: 70/30; 30UAM, 30UPM
  11. ATENOLOL [Concomitant]
     Indication: HYPERTENSION
     Dosage: 100MG
  12. GLUCOPHAGE [Concomitant]
     Indication: DIABETES MELLITUS
     Dosage: 500MG
  13. LARIAM [Concomitant]
     Indication: MALARIA
     Dosage: 250MG
  14. NORVASC [Concomitant]
     Dosage: 10MG QD
  15. HYDROCHLOROTHIAZIDE [Concomitant]
     Dosage: 25MG QD
  16. LIPITOR [Concomitant]
     Dosage: 10MG QD
  17. SINGULAIR [Concomitant]
     Dosage: 10MG QD
  18. AVANDAMET [Concomitant]
     Dosage: 20MG/500MG QD
  19. ALBUTEROL [Concomitant]
     Dosage: 83MG QD
  20. PRINIVIL [Concomitant]
     Indication: HYPERTENSION
     Dosage: 40MG
  21. PLENDIL [Concomitant]
     Dosage: 10MG
  22. FUROSEMIDE [Concomitant]
     Dosage: 20MG
  23. ZESTRIL [Concomitant]
     Dosage: 20MG
  24. TENEX [Concomitant]
     Dosage: 2MG BID
  25. COZAAR [Concomitant]
     Dosage: 100MG BID
  26. ESTROGEN NOS [Suspect]

REACTIONS (31)
  - ABDOMINAL PAIN [None]
  - ADRENAL MASS [None]
  - ANAEMIA [None]
  - ARTERIAL OCCLUSIVE DISEASE [None]
  - BREAST CANCER [None]
  - BREAST FIBROSIS [None]
  - BREAST MASS [None]
  - BREAST MICROCALCIFICATION [None]
  - CHEMOTHERAPY [None]
  - CHEST PAIN [None]
  - CHRONIC SINUSITIS [None]
  - DEPRESSION [None]
  - DIVERTICULITIS [None]
  - DIVERTICULUM [None]
  - ETHMOID SINUS SURGERY [None]
  - HEADACHE [None]
  - INJURY [None]
  - LEUKOPENIA [None]
  - LIVER DISORDER [None]
  - MALIGNANT BREAST LUMP REMOVAL [None]
  - MASTECTOMY [None]
  - METASTASES TO LYMPH NODES [None]
  - MITRAL VALVE SCLEROSIS [None]
  - NEPHROLITHIASIS [None]
  - OSTEOPENIA [None]
  - PERIPHERAL COLDNESS [None]
  - RADIOTHERAPY [None]
  - RENAL DISORDER [None]
  - SINUS ANTROSTOMY [None]
  - SKIN DISCOLOURATION [None]
  - TRICUSPID VALVE INCOMPETENCE [None]
